FAERS Safety Report 7057578-1 (Version None)
Quarter: 2010Q4

REPORT INFORMATION
  Report Type: 
  Country: None (occurrence: None)
  Receive Date: 20101022
  Receipt Date: 20101020
  Transmission Date: 20110411
  Serious: Yes (Other)
  Sender: FDA-Public Use
  Company Number: FI-PFIZER INC-2010132894

PATIENT
  Sex: Female

DRUGS (1)
  1. CELEBRA [Suspect]
     Dosage: UNK

REACTIONS (1)
  - HEPATIC ENZYME INCREASED [None]
